FAERS Safety Report 5771077-6 (Version None)
Quarter: 2008Q2

REPORT INFORMATION
  Report Type: 
  Country: None (occurrence: None)
  Receive Date: 20080613
  Receipt Date: 20080523
  Transmission Date: 20081010
  Serious: No
  Sender: FDA-Public Use
  Company Number: US-ABBOTT-08P-163-0453279-00

PATIENT
  Sex: Male

DRUGS (5)
  1. HUMIRA [Suspect]
     Indication: DRUG USE FOR UNKNOWN INDICATION
     Route: 058
     Dates: start: 20080523
  2. MESALAMINE [Concomitant]
     Indication: DRUG USE FOR UNKNOWN INDICATION
  3. METRONIDAZOLE HCL [Concomitant]
     Indication: DRUG USE FOR UNKNOWN INDICATION
  4. ENTACORT [Concomitant]
     Indication: DRUG USE FOR UNKNOWN INDICATION
  5. POTASSIUM CHLORIDE [Concomitant]
     Indication: DRUG USE FOR UNKNOWN INDICATION

REACTIONS (3)
  - INJECTION SITE BRUISING [None]
  - INJECTION SITE HAEMORRHAGE [None]
  - INJECTION SITE PAIN [None]
